FAERS Safety Report 8383231-8 (Version None)
Quarter: 2012Q2

REPORT INFORMATION
  Report Type: 
  Country: None (occurrence: None)
  Receive Date: 20120524
  Receipt Date: 20120511
  Transmission Date: 20120825
  Serious: Yes (Hospitalization)
  Sender: FDA-Public Use
  Company Number: US-VIROPHARMA INCORPORATED-20120511CINRY2959

PATIENT
  Sex: Female
  Weight: 68.554 kg

DRUGS (9)
  1. MICAFUNGIN [Concomitant]
     Indication: SYSTEMIC CANDIDA
     Dates: start: 20120201
  2. BERINERT [Suspect]
     Indication: ANGIOEDEMA
     Dates: end: 20120318
  3. VANCOMYCIN [Concomitant]
     Indication: BACTERAEMIA
     Dates: start: 20120207
  4. DANAZOL [Suspect]
     Route: 048
     Dates: start: 20120301, end: 20120318
  5. HYDROCORTISONE [Concomitant]
     Route: 048
  6. HYDROCORTISONE [Concomitant]
     Indication: ADRENAL INSUFFICIENCY
     Route: 048
  7. CINRYZE [Suspect]
     Indication: ANGIOEDEMA
     Dates: end: 20120318
  8. ALBUTEROL [Concomitant]
     Indication: WHEEZING
  9. DANAZOL [Suspect]
     Indication: ANGIOEDEMA
     Route: 048
     Dates: end: 20120301

REACTIONS (21)
  - DEVICE RELATED INFECTION [None]
  - BACTERAEMIA [None]
  - ABDOMINAL PAIN [None]
  - CORYNEBACTERIUM SEPSIS [None]
  - LACTOBACILLUS INFECTION [None]
  - ABDOMINAL DISTENSION [None]
  - VENOUS THROMBOSIS LIMB [None]
  - DRUG INEFFECTIVE [None]
  - PNEUMONIA KLEBSIELLA [None]
  - STREPTOCOCCAL INFECTION [None]
  - STAPHYLOCOCCAL SEPSIS [None]
  - STAPHYLOCOCCAL BACTERAEMIA [None]
  - MICROCYTIC ANAEMIA [None]
  - ANGIOEDEMA [None]
  - CANDIDIASIS [None]
  - BACILLUS INFECTION [None]
  - PRESYNCOPE [None]
  - RENAL FAILURE ACUTE [None]
  - OFF LABEL USE [None]
  - ALPHA HAEMOLYTIC STREPTOCOCCAL INFECTION [None]
  - SYSTEMIC CANDIDA [None]
